FAERS Safety Report 7388849-7 (Version None)
Quarter: 2011Q2

REPORT INFORMATION
  Report Type: 
  Country: None (occurrence: None)
  Receive Date: 20110401
  Receipt Date: 20110323
  Transmission Date: 20111010
  Serious: Yes (Life-Threatening)
  Sender: FDA-Public Use
  Company Number: FR-NOVOPROD-325581

PATIENT
  Sex: Male

DRUGS (4)
  1. SIMVASTATIN [Concomitant]
  2. LOSARTAN POTASSIUM [Concomitant]
  3. NOVORAPID [Suspect]
     Indication: PRODUCT USED FOR UNKNOWN INDICATION
     Dosage: UNK
     Route: 058
     Dates: start: 20080101
  4. CELIPROLOL [Concomitant]

REACTIONS (1)
  - PANCREATIC CARCINOMA [None]
